FAERS Safety Report 7218341-1 (Version None)
Quarter: 2011Q1

REPORT INFORMATION
  Report Type: 
  Country: None (occurrence: None)
  Receive Date: 20110110
  Receipt Date: 20101231
  Transmission Date: 20110831
  Serious: Yes (Death)
  Sender: FDA-Public Use
  Company Number: US-PFIZER INC-2011000386

PATIENT
  Sex: Male

DRUGS (6)
  1. PROPOXYPHENE HCL AND ACETAMINOPHEN [Suspect]
     Route: 048
  2. AMITRIPTYLINE [Suspect]
     Route: 048
  3. ACETYLSALICYLIC ACID [Suspect]
     Route: 048
  4. LISINOPRIL [Suspect]
     Route: 048
  5. ALPRAZOLAM [Suspect]
     Route: 048
  6. MELOXICAM [Suspect]
     Route: 048

REACTIONS (2)
  - COMPLETED SUICIDE [None]
  - INTENTIONAL DRUG MISUSE [None]
